FAERS Safety Report 18694634 (Version 1)
Quarter: 2020Q4

REPORT INFORMATION
  Report Type: Spontaneous
  Country: US (occurrence: US)
  Receive Date: 20201231
  Receipt Date: 20201231
  Transmission Date: 20210114
  Serious: Yes (Other)
  Sender: FDA-Public Use
  Company Number: None

PATIENT
  Age: 51 Year
  Sex: Female
  Weight: 122.47 kg

DRUGS (1)
  1. RYBELSUS [Suspect]
     Active Substance: SEMAGLUTIDE
     Indication: DIABETES MELLITUS
     Dosage: ?          OTHER DOSE:3MG AND 7MG;?
     Route: 048
     Dates: start: 20200729, end: 20201208

REACTIONS (3)
  - Impaired gastric emptying [None]
  - Abdominal pain [None]
  - Dyspepsia [None]

NARRATIVE: CASE EVENT DATE: 20201208
